FAERS Safety Report 7725338-1 (Version None)
Quarter: 2011Q3

REPORT INFORMATION
  Report Type: 
  Country: None (occurrence: None)
  Receive Date: 20110829
  Receipt Date: 20110816
  Transmission Date: 20111222
  Serious: Yes (Other)
  Sender: FDA-Public Use
  Company Number: 1017691

PATIENT
  Age: 50 Year
  Sex: Male

DRUGS (2)
  1. THERAPEUTIC RADIOPHARMACEUTICALS [Concomitant]
  2. GEMCITABINE HYDROCHLORIDE [Suspect]
     Indication: SMALL INTESTINE CARCINOMA
     Dosage: 1000 MG/M^2 WEEKLY; 40 MG/M^2 TWICE WEEKLY

REACTIONS (2)
  - MUSCLE NECROSIS [None]
  - MYOSITIS [None]
